FAERS Safety Report 14037616 (Version 1)
Quarter: 2017Q4

REPORT INFORMATION
  Report Type: Spontaneous
  Country: US (occurrence: US)
  Receive Date: 20171003
  Receipt Date: 20171003
  Transmission Date: 20180321
  Serious: Yes (Hospitalization)
  Sender: FDA-Public Use
  Company Number: None

PATIENT
  Age: 51 Year
  Sex: Male
  Weight: 102 kg

DRUGS (13)
  1. XARELTO [Concomitant]
     Active Substance: RIVAROXABAN
  2. PANTOPRAZOLE [Concomitant]
     Active Substance: PANTOPRAZOLE
  3. HCTZ [Concomitant]
     Active Substance: HYDROCHLOROTHIAZIDE
  4. MULTIVITAMIN [Concomitant]
     Active Substance: VITAMINS
  5. EZETIMBE [Concomitant]
     Active Substance: EZETIMIBE
  6. SOTALOL. [Concomitant]
     Active Substance: SOTALOL
  7. DILTIAZEM. [Concomitant]
     Active Substance: DILTIAZEM
  8. VENLAFAXINE [Concomitant]
     Active Substance: VENLAFAXINE HYDROCHLORIDE
  9. SILODOSIN [Concomitant]
     Active Substance: SILODOSIN
  10. TRAZODONE [Suspect]
     Active Substance: TRAZODONE HYDROCHLORIDE
     Indication: SLEEP DISORDER
     Dosage: AT BEDTIME
     Route: 048
     Dates: start: 20171002, end: 20171002
  11. CLONAZEPAM. [Concomitant]
     Active Substance: CLONAZEPAM
  12. SIMVASTATIN. [Concomitant]
     Active Substance: SIMVASTATIN
  13. FENOFIBRATE. [Concomitant]
     Active Substance: FENOFIBRATE

REACTIONS (1)
  - Spontaneous penile erection [None]

NARRATIVE: CASE EVENT DATE: 20171003
